FAERS Safety Report 8758710 (Version 1)
Quarter: 2012Q4

REPORT INFORMATION
  Report Type: 
  Country: US (occurrence: US)
  Receive Date: 20120829
  Receipt Date: 20120829
  Transmission Date: 20130627
  Serious: Yes (Hospitalization)
  Sender: FDA-Public Use
  Company Number: US-MYLANLABS-2012S1017070

PATIENT
  Age: 20 Year
  Sex: Male

DRUGS (7)
  1. CISPLATIN [Suspect]
     Indication: TESTICULAR GERM CELL CANCER METASTATIC
     Dosage: administered with etoposide and bleomycin (2 cycles), then vinblastine and ifosfamide (1 cycle)
     Route: 065
  2. ETOPOSIDE [Suspect]
     Indication: TESTICULAR GERM CELL CANCER METASTATIC
     Route: 065
  3. BLEOMYCIN [Suspect]
     Indication: TESTICULAR GERM CELL CANCER METASTATIC
     Route: 065
  4. VINBLASTINE [Suspect]
     Indication: TESTICULAR GERM CELL CANCER METASTATIC
     Route: 065
  5. IFOSFAMIDE [Suspect]
     Indication: TESTICULAR GERM CELL CANCER METASTATIC
     Route: 065
  6. DEXAMETHASONE [Concomitant]
     Indication: PROPHYLAXIS
     Route: 065
  7. LEVETIRACETAM [Concomitant]
     Indication: CONVULSION PROPHYLAXIS
     Route: 065

REACTIONS (1)
  - Respiratory failure [Not Recovered/Not Resolved]
